FAERS Safety Report 4609101-6 (Version None)
Quarter: 2005Q1

REPORT INFORMATION
  Report Type: 
  Country: None (occurrence: None)
  Receive Date: 20050311
  Receipt Date: 20050228
  Transmission Date: 20050727
  Serious: Yes (Hospitalization)
  Sender: FDA-Public Use
  Company Number: MK200503-0012-1

PATIENT
  Age: 76 Year
  Sex: Male
  Weight: 65 kg

DRUGS (4)
  1. TRAMADOL HYDROCHLORIDE TABS 50MG [Suspect]
     Indication: PAIN
     Dosage: 720 MG, POSTOPERATIVE
  2. HEPARIN [Concomitant]
  3. ONDANSETRON [Concomitant]
  4. ANTIBIOTICS [Concomitant]

REACTIONS (13)
  - BLOOD PRESSURE SYSTOLIC INCREASED [None]
  - CYANOSIS [None]
  - DRUG INEFFECTIVE [None]
  - DYSPNOEA [None]
  - FATIGUE [None]
  - HYPERHIDROSIS [None]
  - IATROGENIC INJURY [None]
  - MUSCLE RIGIDITY [None]
  - NAUSEA [None]
  - OXYGEN SATURATION DECREASED [None]
  - STRIDOR [None]
  - VOCAL CORD DISORDER [None]
  - WOUND COMPLICATION [None]
